FAERS Safety Report 6170503-0 (Version None)
Quarter: 2009Q3

REPORT INFORMATION
  Report Type: 
  Country: None (occurrence: None)
  Receive Date: 20090427
  Receipt Date: 20090427
  Transmission Date: 20100115
  Serious: Yes (Life-Threatening)
  Sender: FDA-Public Use
  Company Number: None

PATIENT
  Age: 80 Year
  Sex: Female
  Weight: 65.8 kg

DRUGS (8)
  1. WARFARIN SODIUM [Suspect]
     Indication: ATRIAL FIBRILLATION
     Dosage: 5 MG PO QD
     Route: 048
     Dates: start: 20090105
  2. WARFARIN SODIUM [Suspect]
     Indication: ATRIAL FIBRILLATION
     Dosage: 5 MG PO QD
     Route: 048
     Dates: start: 20090106
  3. AMIODARONE HCL [Concomitant]
  4. AMLODIPINE [Concomitant]
  5. DOCUSATE [Concomitant]
  6. ERYTHROMYCIN [Concomitant]
  7. INSULIN [Concomitant]
  8. METOPROLOL [Concomitant]

REACTIONS (8)
  - ABDOMINAL PAIN [None]
  - HAEMOGLOBIN DECREASED [None]
  - HAEMORRHAGE [None]
  - HYPERHIDROSIS [None]
  - INTERNATIONAL NORMALISED RATIO INCREASED [None]
  - PALLOR [None]
  - VENTRICULAR TACHYCARDIA [None]
  - WHEEZING [None]
